FAERS Safety Report 14108248 (Version 3)
Quarter: 2019Q2

REPORT INFORMATION
  Report Type: Spontaneous
  Country: US (occurrence: US)
  Receive Date: 20171019
  Receipt Date: 20190626
  Transmission Date: 20190711
  Serious: No
  Sender: FDA-Public Use
  Company Number: US-PFIZER INC-2017443850

PATIENT
  Age: 6 Year
  Sex: Male
  Weight: 14.5 kg

DRUGS (11)
  1. GENOTROPIN [Suspect]
     Active Substance: SOMATROPIN
     Indication: BODY HEIGHT BELOW NORMAL
     Dosage: 1.4 MG, UNK (1.4MG, 5 DAYS A WEEK)
     Dates: start: 20170406
  2. FLUTICASONE. [Concomitant]
     Active Substance: FLUTICASONE
     Dosage: UNK (50 MCG/ACTUATION)
     Route: 045
  3. GENOTROPIN [Suspect]
     Active Substance: SOMATROPIN
     Dosage: 0.9 MG, 5 DAYS/WEEK DOSING
     Route: 058
     Dates: start: 20170926
  4. GENOTROPIN [Suspect]
     Active Substance: SOMATROPIN
     Dosage: 0.7 MG, 6 DAYS/WEEK
     Route: 058
  5. ALBUTEROL SULFATE. [Concomitant]
     Active Substance: ALBUTEROL SULFATE
     Dosage: 0.083 %
  6. FISH OIL [Concomitant]
     Active Substance: FISH OIL
     Dosage: UNK
  7. GENOTROPIN [Suspect]
     Active Substance: SOMATROPIN
     Indication: HYPOPITUITARISM
     Dosage: 1.2 MG, 5 DAYS/WEEK
     Dates: start: 20170406
  8. BUDESONIDE. [Concomitant]
     Active Substance: BUDESONIDE
     Dosage: UNK
  9. GENOTROPIN [Suspect]
     Active Substance: SOMATROPIN
     Indication: GROWTH HORMONE DEFICIENCY
     Dosage: 0.6 MG, 6 DAYS PER WEEK
     Route: 058
     Dates: start: 20170406
  10. CETIRIZINE [Concomitant]
     Active Substance: CETIRIZINE HYDROCHLORIDE
     Dosage: 1 MG, DAILY
     Route: 048
  11. LIDOCAINE/PRILOCAINE [Concomitant]
     Dosage: UNK (APPLY NICKLE SIZED AMOUNT TO SKIN, COVER WITH BANDAGE, REMOVE AFTER 20 MINUTES AND USE PRN)
     Route: 061

REACTIONS (7)
  - Increased appetite [Unknown]
  - Pain in extremity [Unknown]
  - Motion sickness [Unknown]
  - Anxiety [Unknown]
  - Headache [Unknown]
  - Psychomotor hyperactivity [Unknown]
  - Impulsive behaviour [Unknown]
